FAERS Safety Report 6506992-9 (Version None)
Quarter: 2009Q4

REPORT INFORMATION
  Report Type: 
  Country: None (occurrence: None)
  Receive Date: 20091221
  Receipt Date: 20091211
  Transmission Date: 20100525
  Serious: Yes (Hospitalization)
  Sender: FDA-Public Use
  Company Number: GB-ABBOTT-09P-163-0609129-00

PATIENT
  Sex: Male
  Weight: 99 kg

DRUGS (8)
  1. WARFARIN SODIUM [Suspect]
     Indication: DEEP VEIN THROMBOSIS
     Route: 048
     Dates: start: 20090821
  2. SUNITAB MALATE (BLINDED) [Suspect]
     Indication: PROSTATE CANCER
     Route: 048
     Dates: start: 20090714
  3. PREDNISOLONE [Suspect]
     Indication: PROSTATE CANCER
     Dates: start: 20090714
  4. ZOLADEX [Concomitant]
     Indication: PROSTATE CANCER
     Dates: start: 20050101
  5. LISINOPRIL [Concomitant]
     Indication: HYPERTENSION
     Dates: start: 20040101
  6. DOXAZOSIN MESILATE [Concomitant]
     Indication: HYPERTENSION
     Dates: start: 20040101
  7. OMEPRAZOLE [Concomitant]
     Indication: GASTRIC DISORDER
     Dates: start: 20040101
  8. CEPHALEXIN [Concomitant]
     Indication: URINARY TRACT INFECTION
     Dates: start: 20090912, end: 20090919

REACTIONS (1)
  - MEDICAL DEVICE COMPLICATION [None]
